FAERS Safety Report 16231610 (Version 2)
Quarter: 2019Q2

REPORT INFORMATION
  Report Type: Spontaneous
  Country: GB (occurrence: GB)
  Receive Date: 20190424
  Receipt Date: 20190610
  Transmission Date: 20190711
  Serious: Yes (Hospitalization, Other)
  Sender: FDA-Public Use
  Company Number: GB-TEVA-2019-GB-1041589

PATIENT
  Age: 80 Year
  Sex: Female
  Weight: 53.5 kg

DRUGS (2)
  1. SIMVASTATIN. [Suspect]
     Active Substance: SIMVASTATIN
     Dosage: 40 MILLIGRAM DAILY; AT NIGHT
  2. PREDNISOLONE. [Suspect]
     Active Substance: PREDNISOLONE
     Indication: ANAL PROLAPSE
     Dosage: 10 MILLIGRAM DAILY;

REACTIONS (2)
  - Dizziness [Not Recovered/Not Resolved]
  - Night sweats [Unknown]
